FAERS Safety Report 16839889 (Version 1)
Quarter: 2019Q4

REPORT INFORMATION
  Report Type: Spontaneous
  Country: US (occurrence: US)
  Receive Date: 20190920
  Receipt Date: 20190920
  Transmission Date: 20200122
  Serious: Yes (Hospitalization)
  Sender: FDA-Public Use
  Company Number: None

PATIENT
  Age: 58 Year
  Sex: Female

DRUGS (14)
  1. METOPROLOL. [Concomitant]
     Active Substance: METOPROLOL
  2. DULOXETINE. [Concomitant]
     Active Substance: DULOXETINE
  3. CLOPIDEGREL [Concomitant]
  4. PANTOPRAZOLE [Concomitant]
     Active Substance: PANTOPRAZOLE
  5. DILTIAZEM. [Concomitant]
     Active Substance: DILTIAZEM
  6. LORAZEPAM. [Concomitant]
     Active Substance: LORAZEPAM
  7. OXYOODONE [Concomitant]
  8. IBRANDRONATE [Concomitant]
  9. TIZANIDINE. [Concomitant]
     Active Substance: TIZANIDINE
  10. CIMZIA [Suspect]
     Active Substance: CERTOLIZUMAB PEGOL
     Indication: RHEUMATOID ARTHRITIS
     Route: 058
  11. ATORVASTATIN [Concomitant]
     Active Substance: ATORVASTATIN
  12. ONDANSETRON [Concomitant]
     Active Substance: ONDANSETRON
  13. METHOTREXATE. [Concomitant]
     Active Substance: METHOTREXATE
  14. LYRICA [Concomitant]
     Active Substance: PREGABALIN

REACTIONS (3)
  - Hypertension [None]
  - Therapy cessation [None]
  - Pain [None]

NARRATIVE: CASE EVENT DATE: 20190915
